FAERS Safety Report 5281006-X (Version None)
Quarter: 2007Q1

REPORT INFORMATION
  Report Type: 
  Country: None (occurrence: None)
  Receive Date: 20061229
  Receipt Date: 20060807
  Transmission Date: 20070707
  Serious: Yes (Other)
  Sender: FDA-Public Use
  Company Number: 2006UW15642

PATIENT
  Age: 76 Year
  Sex: Female
  Weight: 68.038 kg

DRUGS (3)
  1. CRESTOR [Suspect]
     Indication: HYPERCHOLESTEROLAEMIA
     Dosage: 40 MG PO
     Route: 048
     Dates: start: 20060804
  2. ASPIRIN [Concomitant]
  3. ALLEGRA [Concomitant]

REACTIONS (2)
  - BACK PAIN [None]
  - RESTLESS LEGS SYNDROME [None]
